FAERS Safety Report 23947398 (Version 2)
Quarter: 2024Q4

REPORT INFORMATION
  Report Type: Spontaneous
  Country: JP (occurrence: JP)
  Receive Date: 20240606
  Receipt Date: 20241002
  Transmission Date: 20250114
  Serious: Yes (Hospitalization)
  Sender: EISAI
  Company Number: JP-Eisai-202402385_LEN-EC_P_1

PATIENT
  Sex: Female

DRUGS (3)
  1. LENVIMA [Suspect]
     Active Substance: LENVATINIB
     Indication: Endometrial cancer
     Route: 048
     Dates: start: 202403, end: 202405
  2. LENVIMA [Suspect]
     Active Substance: LENVATINIB
     Dosage: ADMINISTRATION OF 5-DOSE AND 2-INTERRUPTION (5 DAYS ON AND 2 DAYS OFF REGIMEN).
     Route: 048
     Dates: start: 2024, end: 202406
  3. KEYTRUDA [Suspect]
     Active Substance: PEMBROLIZUMAB
     Indication: Endometrial cancer
     Dosage: 3 COURSES.
     Route: 042
     Dates: start: 202404, end: 202406

REACTIONS (4)
  - White blood cell count increased [Recovered/Resolved]
  - Adrenal insufficiency [Recovering/Resolving]
  - Blood pressure decreased [Recovered/Resolved]
  - Hyperthyroidism [Recovering/Resolving]

NARRATIVE: CASE EVENT DATE: 20240101
